FAERS Safety Report 8912548 (Version 1)
Quarter: 2012Q4

REPORT INFORMATION
  Report Type: 
  Country: US (occurrence: US)
  Receive Date: 20121115
  Receipt Date: 20121115
  Transmission Date: 20130627
  Serious: Yes (Hospitalization)
  Sender: FDA-Public Use
  Company Number: US-ASTRAZENECA-2012SE84881

PATIENT

DRUGS (1)
  1. FASLODEX [Suspect]
     Indication: BREAST CANCER METASTATIC
     Route: 030

REACTIONS (1)
  - Pneumonitis [Unknown]
